FAERS Safety Report 7830818-4 (Version None)
Quarter: 2011Q4

REPORT INFORMATION
  Report Type: 
  Country: None (occurrence: None)
  Receive Date: 20111021
  Receipt Date: 20111012
  Transmission Date: 20120403
  Serious: Yes (Other)
  Sender: FDA-Public Use
  Company Number: JP-GLAXOSMITHKLINE-B0752042A

PATIENT
  Age: 68 Year
  Sex: Female

DRUGS (3)
  1. TYKERB [Suspect]
     Dosage: 1500MG PER DAY
     Route: 048
     Dates: start: 20111005
  2. TYKERB [Suspect]
     Indication: PRODUCT USED FOR UNKNOWN INDICATION
     Dosage: 2000MG PER DAY
     Route: 048
     Dates: start: 20110501, end: 20110801
  3. XELODA [Concomitant]
     Route: 048

REACTIONS (4)
  - ABDOMINAL DISCOMFORT [None]
  - SKIN EXFOLIATION [None]
  - ERYTHEMA [None]
  - OVERDOSE [None]
